FAERS Safety Report 8499125-3 (Version None)
Quarter: 2012Q2

REPORT INFORMATION
  Report Type: 
  Country: None (occurrence: None)
  Receive Date: 20120405
  Receipt Date: 20100310
  Transmission Date: 20120825
  Serious: Yes (Hospitalization)
  Sender: FDA-Public Use
  Company Number: PHHY2010US15365

PATIENT
  Age: 65 Year
  Sex: Female
  Weight: 59 kg

DRUGS (1)
  1. RECLAST [Suspect]
     Dosage: 5 MG, YEARLY, INTRAVENOUS
     Route: 042

REACTIONS (3)
  - RASH [None]
  - VOMITING [None]
  - NAUSEA [None]
